FAERS Safety Report 7023711-0 (Version None)
Quarter: 2010Q4

REPORT INFORMATION
  Report Type: 
  Country: None (occurrence: None)
  Receive Date: 20101001
  Receipt Date: 20100917
  Transmission Date: 20110411
  Serious: Yes (Life-Threatening, Hospitalization)
  Sender: FDA-Public Use
  Company Number: DE-RANBAXY-2009RR-25684

PATIENT
  Age: 91 Year
  Sex: Female

DRUGS (7)
  1. ATENOLOL [Suspect]
     Indication: HYPERTENSION
     Dosage: 100 MG, QD
     Route: 048
     Dates: start: 20070501, end: 20080902
  2. DIGITOXIN [Suspect]
     Indication: ATRIAL FIBRILLATION
     Dosage: 0.07 MG, UNK
     Route: 048
     Dates: start: 20070501, end: 20080901
  3. AGGRENOX [Concomitant]
     Indication: CORONARY ARTERY DISEASE
     Dosage: 1 DF, UNK
     Route: 048
     Dates: start: 20070501, end: 20080901
  4. BRONCHORETARD [Concomitant]
     Indication: CHRONIC OBSTRUCTIVE PULMONARY DISEASE
     Dosage: 200 MG, UNK
     Route: 048
  5. ENABETA COMP [Concomitant]
     Indication: HYPERTENSION
     Dosage: 1 DF, UNK
     Route: 048
     Dates: start: 20070501, end: 20080902
  6. METFORMIN [Concomitant]
     Indication: DIABETES MELLITUS
     Dosage: 500 MG, UNK
     Route: 048
     Dates: end: 20080902
  7. SIMVABETA [Concomitant]
     Indication: CORONARY ARTERY DISEASE
     Dosage: 10 MG, UNK
     Route: 048
     Dates: end: 20080902

REACTIONS (1)
  - BRADYARRHYTHMIA [None]
